FAERS Safety Report 23232936 (Version 1)
Quarter: 2023Q4

REPORT INFORMATION
  Report Type: Spontaneous
  Country: FR (occurrence: FR)
  Receive Date: 20231128
  Receipt Date: 20231128
  Transmission Date: 20240110
  Serious: Yes (Hospitalization, Other)
  Sender: FDA-Public Use
  Company Number: FR-AMGEN-FRASP2022230286

PATIENT

DRUGS (4)
  1. ADALIMUMAB [Suspect]
     Active Substance: ADALIMUMAB\ISOPROPYL ALCOHOL
     Indication: Macular oedema
     Dosage: 80 MILLIGRAM, Q2WK
     Route: 058
  2. ADALIMUMAB [Suspect]
     Active Substance: ADALIMUMAB\ISOPROPYL ALCOHOL
     Dosage: 40 MILLIGRAM, Q2WK
     Route: 058
  3. METHOTREXATE [Concomitant]
     Active Substance: METHOTREXATE
  4. MYCOPHENOLATE MOFETIL [Concomitant]
     Active Substance: MYCOPHENOLATE MOFETIL
     Dosage: UNK
     Route: 065

REACTIONS (16)
  - Pseudomonas infection [Unknown]
  - Abscess [Unknown]
  - Pyelonephritis [Unknown]
  - Pneumonia [Unknown]
  - Meningitis [Unknown]
  - Macular oedema [Unknown]
  - Autoimmune disorder [Unknown]
  - Hallucination [Unknown]
  - Therapy partial responder [Unknown]
  - Hypersensitivity [Unknown]
  - Adverse event [Unknown]
  - Fatigue [Unknown]
  - Infection [Unknown]
  - Headache [Unknown]
  - Injection site reaction [Unknown]
  - Visual acuity reduced [Unknown]
